FAERS Safety Report 10240274 (Version 1)
Quarter: 2014Q2

REPORT INFORMATION
  Report Type: Spontaneous
  Country: GB (occurrence: GB)
  Receive Date: 20140617
  Receipt Date: 20140617
  Transmission Date: 20141212
  Serious: Yes (Hospitalization)
  Sender: FDA-Public Use
  Company Number: PHFR2014GB004163

PATIENT
  Sex: Male

DRUGS (2)
  1. TRILEPTAL [Suspect]
     Indication: EPILEPSY
     Dosage: 750 MG, (450 MG IN MORNING AND 300 MG AT NIGHT)
     Route: 048
  2. CARBAMAZEPINE [Suspect]
     Indication: EPILEPSY
     Dosage: 750 MG, (450 MG IN THE MORNING AND 300 MG AT NIGHT)
     Route: 048

REACTIONS (3)
  - Injury [Not Recovered/Not Resolved]
  - Fall [Not Recovered/Not Resolved]
  - Wrong drug administered [Unknown]
